FAERS Safety Report 9045265 (Version 1)
Quarter: 2013Q1

REPORT INFORMATION
  Report Type: Report from Study
  Country: US (occurrence: US)
  Receive Date: 20130131
  Receipt Date: 20130131
  Transmission Date: 20140127
  Serious: No
  Sender: FDA-Public Use
  Company Number: US-ABBOTT-12P-163-0993099-00

PATIENT
  Age: 39 Year
  Sex: Female

DRUGS (6)
  1. HUMIRA [Suspect]
     Indication: CROHN^S DISEASE
     Dates: start: 20111007
  2. CITALOPRAM [Concomitant]
     Indication: DEPRESSION
     Dosage: 40MG NIGHTLY
  3. WELLBUTRIN [Concomitant]
     Indication: DEPRESSION
     Dosage: DAILY
  4. TEMAZEPAM [Concomitant]
     Indication: SLEEP DISORDER
  5. ACYCLOVIR [Concomitant]
     Indication: ANTIVIRAL TREATMENT
  6. LEVOCETIRIZINE [Concomitant]
     Indication: SINUS DISORDER

REACTIONS (1)
  - Device leakage [Not Recovered/Not Resolved]
